FAERS Safety Report 5699215-4 (Version None)
Quarter: 2008Q2

REPORT INFORMATION
  Report Type: 
  Country: None (occurrence: None)
  Receive Date: 20080407
  Receipt Date: 20080407
  Transmission Date: 20081010
  Serious: No
  Sender: FDA-Public Use
  Company Number: None

PATIENT
  Age: 60 Year
  Sex: Male

DRUGS (4)
  1. CEFAZOLIN [Suspect]
     Dates: start: 20070413, end: 20070413
  2. TYLENOL W/ CODEINE NO. 3 [Concomitant]
  3. CHOLESTYRAMINE [Concomitant]
  4. ATARAX [Concomitant]

REACTIONS (3)
  - HEPATITIS [None]
  - LIVER INJURY [None]
  - WEIGHT DECREASED [None]
